FAERS Safety Report 10900208 (Version 4)
Quarter: 2015Q2

REPORT INFORMATION
  Report Type: Spontaneous
  Country: IT (occurrence: IT)
  Receive Date: 20150310
  Receipt Date: 20150420
  Transmission Date: 20150821
  Serious: Yes (Hospitalization)
  Sender: FDA-Public Use
  Company Number: IT-009507513-1503ITA000776

PATIENT
  Age: 56 Year
  Sex: Male

DRUGS (11)
  1. PROGRAF [Concomitant]
     Active Substance: TACROLIMUS\TACROLIMUS ANHYDROUS
     Indication: HEPATITIS C
     Dosage: 1 MG, QD
     Route: 048
  2. BACTRIM [Concomitant]
     Active Substance: SULFAMETHOXAZOLE\TRIMETHOPRIM
     Indication: HEPATITIS C
     Dosage: 400 MG, UNK
     Route: 048
  3. ACICLIN [Concomitant]
     Active Substance: ACYCLOVIR
     Indication: HEPATITIS C
     Dosage: 800 MG, QD
     Route: 048
  4. MEDROL [Concomitant]
     Active Substance: METHYLPREDNISOLONE
     Indication: HEPATITIS C
     Route: 048
  5. XATRAL [Concomitant]
     Active Substance: ALFUZOSIN
     Indication: HEPATITIS C
     Dosage: 1 DF, UNK
     Route: 048
  6. SOVALDI [Suspect]
     Active Substance: SOFOSBUVIR
     Indication: HEPATITIS C
     Dosage: 400 MG, QD
     Route: 048
     Dates: start: 20150113, end: 20150218
  7. PERFALGAN [Concomitant]
     Active Substance: ACETAMINOPHEN
     Indication: HEPATITIS C
     Dosage: UNK
     Route: 042
  8. REBETOL [Suspect]
     Active Substance: RIBAVIRIN
     Indication: HEPATITIS C
     Dosage: 800 MG, DAILY
     Route: 048
     Dates: start: 20150113, end: 20150218
  9. ISOSOURCE [Concomitant]
     Indication: HEPATITIS C
     Dosage: UNK
     Route: 042
  10. NORMIX [Concomitant]
     Active Substance: RIFAXIMIN
     Indication: HEPATITIS C
     Dosage: 600 MG, QD
     Route: 048
  11. REBETOL [Suspect]
     Active Substance: RIBAVIRIN
     Dosage: 800 MG, QD
     Route: 048
     Dates: start: 20131227, end: 20140925

REACTIONS (2)
  - Psychomotor hyperactivity [Recovering/Resolving]
  - Psychotic disorder [Recovering/Resolving]

NARRATIVE: CASE EVENT DATE: 20150216
